FAERS Safety Report 8856903 (Version 1)
Quarter: 2012Q4

REPORT INFORMATION
  Report Type: Spontaneous
  Country: US (occurrence: None)
  Receive Date: 20121019
  Receipt Date: 20121019
  Transmission Date: 20130627
  Serious: Yes (Hospitalization, Other)
  Sender: FDA-Public Use
  Company Number: VAL_00917_2012

PATIENT
  Age: 36 Year
  Sex: Female

DRUGS (2)
  1. PARLODEL [Suspect]
     Indication: SUPPRESSED LACTATION
     Dosage: 2 weeks 1 day until unknown
  2. METHYLERGOMETRINE [Suspect]
     Indication: PRODUCT USED FOR UNKNOWN INDICATION
     Dosage: 2 days 0 hours until unknown

REACTIONS (22)
  - Hypertension [None]
  - Headache [None]
  - Photophobia [None]
  - Dizziness [None]
  - Emotional disorder [None]
  - Depression [None]
  - Tearfulness [None]
  - Loss of consciousness [None]
  - Neurological symptom [None]
  - Intracranial haematoma [None]
  - Postoperative thrombosis [None]
  - Muscular weakness [None]
  - Convulsion [None]
  - Memory impairment [None]
  - Cognitive disorder [None]
  - Aphasia [None]
  - Fatigue [None]
  - Obsessive-compulsive disorder [None]
  - Restlessness [None]
  - Self esteem decreased [None]
  - Mental disorder [None]
  - Cerebrovascular accident [None]
